FAERS Safety Report 18996281 (Version 1)
Quarter: 2021Q1

REPORT INFORMATION
  Report Type: Spontaneous
  Country: US (occurrence: US)
  Receive Date: 20210310
  Receipt Date: 20210310
  Transmission Date: 20210420
  Serious: Yes (Other)
  Sender: FDA-Public Use
  Company Number: None

PATIENT
  Age: 59 Year
  Sex: Female
  Weight: 62.1 kg

DRUGS (1)
  1. TIZANIDINE HYDROCHLORIDE 4MG TAB, SUB FOR ZANAFLEX [Suspect]
     Active Substance: TIZANIDINE HYDROCHLORIDE
     Indication: SCIATICA
     Route: 048
     Dates: start: 20210309, end: 20210310

REACTIONS (5)
  - Blood urine present [None]
  - Dysuria [None]
  - Urine abnormality [None]
  - Urinary tract infection [None]
  - Micturition urgency [None]

NARRATIVE: CASE EVENT DATE: 20210310
